FAERS Safety Report 25644005 (Version 1)
Quarter: 2025Q3

REPORT INFORMATION
  Report Type: Spontaneous
  Country: EU (occurrence: EU)
  Receive Date: 20250805
  Receipt Date: 20250805
  Transmission Date: 20251020
  Serious: Yes (Other)
  Sender: RANBAXY
  Company Number: EU-AFSSAPS-AVMP2025000098

PATIENT
  Age: 24 Year
  Sex: Male

DRUGS (3)
  1. TESTOSTERONE [Suspect]
     Active Substance: TESTOSTERONE
     Indication: Product used for unknown indication
     Route: 030
     Dates: start: 20250323, end: 20250323
  2. NANDROLONE [Suspect]
     Active Substance: NANDROLONE
     Indication: Product used for unknown indication
     Route: 030
     Dates: start: 20250323, end: 20250323
  3. MESTEROLONE [Suspect]
     Active Substance: MESTEROLONE
     Indication: Product used for unknown indication
     Route: 048
     Dates: start: 20250323, end: 20250323

REACTIONS (2)
  - Substance use disorder [Unknown]
  - Chest discomfort [Unknown]

NARRATIVE: CASE EVENT DATE: 20250323
